FAERS Safety Report 5389137-0 (Version None)
Quarter: 2007Q3

REPORT INFORMATION
  Report Type: 
  Country: None (occurrence: None)
  Receive Date: 20070717
  Receipt Date: 20070702
  Transmission Date: 20080115
  Serious: Yes (Life-Threatening, Hospitalization)
  Sender: FDA-Public Use
  Company Number: FR-AMGEN-US233954

PATIENT
  Age: 59 Year
  Sex: Male
  Weight: 74 kg

DRUGS (6)
  1. ENBREL [Suspect]
     Indication: ANKYLOSING SPONDYLITIS
     Route: 058
     Dates: start: 20070101, end: 20070427
  2. INNOHEP [Concomitant]
     Indication: PULMONARY EMBOLISM
     Dosage: 10000 IU ANTI-XA/0.5 ML; 1 DOSE DAILY
     Route: 058
     Dates: start: 20070101
  3. SPIRIVA [Concomitant]
     Indication: BRONCHITIS CHRONIC
     Route: 055
  4. TERCIAN [Concomitant]
     Indication: ANXIETY
     Route: 048
  5. XANAX [Concomitant]
     Indication: ANXIETY
     Route: 048
  6. IMOVANE [Concomitant]
     Indication: ANXIETY
     Route: 048

REACTIONS (3)
  - ATRIAL THROMBOSIS [None]
  - PULMONARY EMBOLISM [None]
  - PULMONARY VENOUS THROMBOSIS [None]
